FAERS Safety Report 21140651 (Version 1)
Quarter: 2022Q3

REPORT INFORMATION
  Report Type: Spontaneous
  Country: DE (occurrence: DE)
  Receive Date: 20220728
  Receipt Date: 20220728
  Transmission Date: 20221027
  Serious: Yes (Death, Other)
  Sender: FDA-Public Use
  Company Number: DE-AMGEN-DEUSP2022126952

PATIENT
  Age: 40 Year
  Sex: Female

DRUGS (10)
  1. FILGRASTIM [Suspect]
     Active Substance: FILGRASTIM
     Indication: Leukopenia
     Route: 065
  2. AZACITIDINE [Concomitant]
     Active Substance: AZACITIDINE
  3. VENETOCLAX [Concomitant]
     Active Substance: VENETOCLAX
  4. GILTERITINIB [Concomitant]
     Active Substance: GILTERITINIB
  5. FLUDARABINE [Concomitant]
     Active Substance: FLUDARABINE PHOSPHATE
  6. CARMUSTINE [Concomitant]
     Active Substance: CARMUSTINE
  7. MELPHALAN [Concomitant]
     Active Substance: MELPHALAN
  8. CYCLOSPORINE [Concomitant]
     Active Substance: CYCLOSPORINE
  9. MYCOPHENOLATE MOFETIL [Concomitant]
     Active Substance: MYCOPHENOLATE MOFETIL
  10. PREDNISOLONE [Concomitant]
     Active Substance: PREDNISOLONE

REACTIONS (3)
  - Febrile neutropenia [Fatal]
  - Acute kidney injury [Unknown]
  - Multiple organ dysfunction syndrome [Unknown]
